FAERS Safety Report 22930494 (Version 4)
Quarter: 2025Q3

REPORT INFORMATION
  Report Type: Spontaneous
  Country: US (occurrence: US)
  Receive Date: 20230911
  Receipt Date: 20250813
  Transmission Date: 20251021
  Serious: No
  Sender: PFIZER
  Company Number: US-PFIZER INC-PV202300152848

PATIENT
  Age: 58 Year
  Sex: Female

DRUGS (1)
  1. PREMPRO [Suspect]
     Active Substance: ESTROGENS, CONJUGATED\MEDROXYPROGESTERONE ACETATE
     Indication: Headache

REACTIONS (6)
  - Hot flush [Unknown]
  - Malaise [Unknown]
  - Burning sensation [Unknown]
  - Insomnia [Unknown]
  - Off label use [Unknown]
  - Drug effective for unapproved indication [Unknown]
